FAERS Safety Report 19796988 (Version 1)
Quarter: 2021Q3

REPORT INFORMATION
  Report Type: Spontaneous
  Country: US (occurrence: US)
  Receive Date: 20210905
  Receipt Date: 20210905
  Transmission Date: 20211014
  Serious: No
  Sender: FDA-Public Use
  Company Number: None

PATIENT
  Age: 45 Year
  Sex: Female
  Weight: 65.25 kg

DRUGS (1)
  1. QWO [Suspect]
     Active Substance: COLLAGENASE CLOSTRIDIUM HISTOLYTICUM-AAES
     Indication: SKIN COSMETIC PROCEDURE
     Dosage: ?          OTHER ROUTE:COSMETIC CELLULITE?
     Dates: start: 20210421, end: 20210421

REACTIONS (2)
  - Contusion [None]
  - Atrophy [None]

NARRATIVE: CASE EVENT DATE: 20210421
